FAERS Safety Report 8302902-2 (Version None)
Quarter: 2012Q2

REPORT INFORMATION
  Report Type: 
  Country: None (occurrence: None)
  Receive Date: 20120420
  Receipt Date: 20120416
  Transmission Date: 20120825
  Serious: Yes (Congenital Anomaly)
  Sender: FDA-Public Use
  Company Number: US-GILEAD-2012-0053663

PATIENT

DRUGS (5)
  1. REYATAZ [Concomitant]
     Indication: HIV INFECTION
     Dosage: UNK
     Route: 064
     Dates: start: 20110713, end: 20111027
  2. NORVIR [Concomitant]
     Indication: HIV INFECTION
     Dosage: 100 MG, QD
     Route: 064
     Dates: start: 20110713, end: 20111027
  3. COMBIVIR [Concomitant]
     Indication: HIV INFECTION
     Dosage: 1 DF, QD
     Route: 064
     Dates: start: 20111121
  4. ISENTRESS [Concomitant]
     Indication: HIV INFECTION
     Dosage: 800 MG, QD
     Route: 064
     Dates: start: 20111121
  5. EMTRICITABINE AND TENOFOVIR DISOPROXIL FUMARATE [Suspect]
     Indication: HIV INFECTION
     Dosage: 1 DF, QD
     Route: 064
     Dates: start: 20110713, end: 20111027

REACTIONS (3)
  - ARNOLD-CHIARI MALFORMATION [None]
  - SPINA BIFIDA [None]
  - VERTICAL TALUS [None]
